FAERS Safety Report 18062735 (Version 2)
Quarter: 2020Q3

REPORT INFORMATION
  Report Type: Report from Study
  Country: MX (occurrence: MX)
  Receive Date: 20200724
  Receipt Date: 20200918
  Transmission Date: 20201103
  Serious: Yes (Death, Hospitalization)
  Sender: FDA-Public Use
  Company Number: MX-ADVANZ PHARMA-202007007280

PATIENT

DRUGS (9)
  1. HYDROXYCHLOROQUINE SULFATE (AUTHORIZED GENERIC),PLAQUENIL [Suspect]
     Active Substance: HYDROXYCHLOROQUINE SULFATE
     Indication: COVID-19
     Dosage: 1 DOSAGE FORM, BID
     Dates: start: 20200612, end: 20200613
  2. AMIODARONE [Concomitant]
     Active Substance: AMIODARONE
  3. ENOXAPARIN [Concomitant]
     Active Substance: ENOXAPARIN
  4. FUROSEMIDE. [Concomitant]
     Active Substance: FUROSEMIDE
  5. NOREPINEPHRINE. [Concomitant]
     Active Substance: NOREPINEPHRINE
  6. CEPHALOSPORIN NOS [Concomitant]
     Active Substance: UNSPECIFIED INGREDIENT
  7. ACETAMINOPHEN. [Concomitant]
     Active Substance: ACETAMINOPHEN
  8. INSULIN [Concomitant]
     Active Substance: INSULIN NOS
  9. HYDROXYCHLOROQUINE SULFATE (AUTHORIZED GENERIC),PLAQUENIL [Suspect]
     Active Substance: HYDROXYCHLOROQUINE SULFATE
     Indication: PRODUCT USE IN UNAPPROVED INDICATION

REACTIONS (5)
  - Pyrexia [Recovered/Resolved]
  - Alanine aminotransferase increased [Unknown]
  - Off label use [Unknown]
  - Blood sodium increased [Unknown]
  - Aspartate aminotransferase increased [Unknown]

NARRATIVE: CASE EVENT DATE: 20200612
